FAERS Safety Report 6447126-9 (Version None)
Quarter: 2009Q4

REPORT INFORMATION
  Report Type: 
  Country: None (occurrence: None)
  Receive Date: 20091119
  Receipt Date: 20091106
  Transmission Date: 20100525
  Serious: Yes (Life-Threatening, Hospitalization)
  Sender: FDA-Public Use
  Company Number: CH-PFIZER INC-2009293999

PATIENT
  Age: 73 Year
  Sex: Male

DRUGS (11)
  1. LYRICA [Suspect]
     Dosage: 150 MG, 2X/DAY
     Route: 048
  2. CLOZAPINE [Suspect]
     Dosage: 175 MG, UNK
     Route: 048
     Dates: start: 20090717, end: 20091023
  3. CLOZAPINE [Suspect]
     Dosage: UNK
  4. REMERON [Suspect]
     Dosage: 30 MG, 1X/DAY
     Route: 048
  5. DAFALGAN [Suspect]
     Dosage: 500 MG, 3X/DAY
     Route: 048
  6. CIPROFLOXACIN [Suspect]
     Dosage: 500 MG, 2X/DAY
     Route: 048
     Dates: start: 20091007, end: 20091012
  7. TAVANIC [Suspect]
     Dosage: 500 MG, 1X/DAY
     Route: 048
     Dates: start: 20091012, end: 20091020
  8. CIPRALEX [Concomitant]
     Dosage: 20 MG, 1X/DAY
     Route: 048
     Dates: start: 20090101
  9. EFFORTIL [Concomitant]
     Dosage: 10 GTT, 2X/DAY
     Route: 048
     Dates: start: 20090729
  10. LAXOBERON [Concomitant]
     Dosage: 10 GTT, 1X/DAY
     Route: 048
     Dates: start: 20090805
  11. NULYTELY [Concomitant]
     Dosage: 1 DF, 1X/DAY
     Route: 048
     Dates: start: 20090912

REACTIONS (2)
  - BACTERIAL INFECTION [None]
  - NEUTROPENIA [None]
